FAERS Safety Report 14346180 (Version 1)
Quarter: 2018Q1

REPORT INFORMATION
  Report Type: Report from Study
  Country: CA (occurrence: CA)
  Receive Date: 20180103
  Receipt Date: 20180103
  Transmission Date: 20180509
  Serious: Yes (Other)
  Sender: FDA-Public Use
  Company Number: CA-MYLANLABS-2017M1076485

PATIENT
  Age: 59 Year
  Sex: Female

DRUGS (2)
  1. EPIVAL [Suspect]
     Active Substance: DIVALPROEX SODIUM
     Indication: BIPOLAR DISORDER
     Dosage: 1000 MG, UNK
     Route: 048
     Dates: start: 201207
  2. CLOZAPINE. [Suspect]
     Active Substance: CLOZAPINE
     Indication: BIPOLAR DISORDER
     Dosage: 200 MG, UNK
     Route: 048
     Dates: start: 20171117, end: 20171117

REACTIONS (2)
  - Product use in unapproved indication [Recovered/Resolved]
  - Ankle fracture [Recovering/Resolving]

NARRATIVE: CASE EVENT DATE: 20171117
